FAERS Safety Report 10768469 (Version 2)
Quarter: 2015Q1

REPORT INFORMATION
  Report Type: Spontaneous
  Country: NZ (occurrence: NZ)
  Receive Date: 20150206
  Receipt Date: 20150216
  Transmission Date: 20150721
  Serious: No
  Sender: FDA-Public Use
  Company Number: NZ-ROCHE-1531414

PATIENT
  Sex: Female

DRUGS (10)
  1. HERCEPTIN [Suspect]
     Active Substance: TRASTUZUMAB
     Route: 042
     Dates: start: 201401
  2. HERCEPTIN [Suspect]
     Active Substance: TRASTUZUMAB
     Route: 042
     Dates: end: 20140508
  3. HERCEPTIN [Suspect]
     Active Substance: TRASTUZUMAB
     Dosage: MAINTAINENCE DOSE?ENDED AFTER 3 CYCLES
     Route: 042
  4. TAXOTERE [Concomitant]
     Active Substance: DOCETAXEL
     Route: 065
     Dates: start: 20120702
  5. EPIRUBICIN [Concomitant]
     Active Substance: EPIRUBICIN
     Route: 065
     Dates: start: 201207
  6. HERCEPTIN [Suspect]
     Active Substance: TRASTUZUMAB
     Route: 042
     Dates: start: 20140529
  7. HERCEPTIN [Suspect]
     Active Substance: TRASTUZUMAB
     Indication: HER-2 POSITIVE BREAST CANCER
     Dosage: LOADING DOSE
     Route: 042
     Dates: start: 20120702
  8. FLUOROURACIL. [Concomitant]
     Active Substance: FLUOROURACIL
     Route: 065
     Dates: start: 201207
  9. VINORELBINE [Concomitant]
     Active Substance: VINORELBINE\VINORELBINE TARTRATE
     Route: 065
     Dates: start: 20140122, end: 20140508
  10. CYCLOPHOSPHAMIDE. [Concomitant]
     Active Substance: CYCLOPHOSPHAMIDE
     Route: 065
     Dates: start: 201207

REACTIONS (2)
  - Cystocele [Not Recovered/Not Resolved]
  - Hydronephrosis [Not Recovered/Not Resolved]
